FAERS Safety Report 9753134 (Version 1)
Quarter: 2013Q4

REPORT INFORMATION
  Report Type: Spontaneous
  Country: US (occurrence: US)
  Receive Date: 20131213
  Receipt Date: 20131213
  Transmission Date: 20140711
  Serious: No
  Sender: FDA-Public Use
  Company Number: US-GILEAD-2010-0026435

PATIENT
  Sex: Female
  Weight: 60.78 kg

DRUGS (12)
  1. LETAIRIS [Suspect]
     Indication: PULMONARY ARTERIAL HYPERTENSION
     Route: 048
     Dates: start: 20091216
  2. TRAZODONE [Concomitant]
  3. PREMARIN [Concomitant]
  4. CHOLESTYRAMINE [Concomitant]
  5. ZOLPIDEM TARTRATE [Concomitant]
  6. VIAGRA [Concomitant]
  7. EXFORGE [Concomitant]
  8. METOCLOPRAMIDE [Concomitant]
  9. METRONIDAZOLE [Concomitant]
  10. NEXIUM [Concomitant]
  11. SKELAXIN [Concomitant]
  12. LEVOXYL [Concomitant]

REACTIONS (1)
  - Unevaluable event [Unknown]
